FAERS Safety Report 7397516-5 (Version None)
Quarter: 2011Q2

REPORT INFORMATION
  Report Type: 
  Country: None (occurrence: None)
  Receive Date: 20110406
  Receipt Date: 20110404
  Transmission Date: 20111010
  Serious: Yes (Life-Threatening, Hospitalization)
  Sender: FDA-Public Use
  Company Number: PHHY2011GB24984

PATIENT
  Age: 57 Year
  Sex: Female
  Weight: 60 kg

DRUGS (8)
  1. OMEPRAZOLE [Concomitant]
  2. CEFUROXIME [Suspect]
     Indication: KNEE OPERATION
     Dosage: 1.2 G
     Route: 042
     Dates: start: 20101104, end: 20101211
  3. PREGABALIN [Concomitant]
     Dosage: UNK
  4. VENLAFAXINE [Concomitant]
  5. OXYCONTIN [Concomitant]
  6. ZOPICLONE [Concomitant]
  7. METHADONE [Concomitant]
  8. TRIFLUOPERAZINE HCL [Concomitant]

REACTIONS (3)
  - BLOOD POTASSIUM INCREASED [None]
  - INTRAVASCULAR HAEMOLYSIS [None]
  - RENAL FAILURE [None]
